FAERS Safety Report 13767645 (Version 2)
Quarter: 2017Q3

REPORT INFORMATION
  Report Type: Spontaneous
  Country: US (occurrence: US)
  Receive Date: 20170719
  Receipt Date: 20170825
  Transmission Date: 20171127
  Serious: No
  Sender: FDA-Public Use
  Company Number: US-BRISTOL-MYERS SQUIBB COMPANY-BMS-2017-063942

PATIENT
  Age: 79 Year
  Sex: Female

DRUGS (1)
  1. SPRYCEL [Suspect]
     Active Substance: DASATINIB
     Indication: CHRONIC LEUKAEMIA
     Dosage: 80 MG, QD
     Route: 048
     Dates: start: 20170705

REACTIONS (4)
  - Dizziness [Recovering/Resolving]
  - Prescribed underdose [Unknown]
  - Pruritus [Not Recovered/Not Resolved]
  - Fatigue [Recovering/Resolving]

NARRATIVE: CASE EVENT DATE: 20170712
